FAERS Safety Report 6551075-5 (Version None)
Quarter: 2010Q1

REPORT INFORMATION
  Report Type: 
  Country: None (occurrence: None)
  Receive Date: 20100122
  Receipt Date: 20100122
  Transmission Date: 20100710
  Serious: Yes (Other)
  Sender: FDA-Public Use
  Company Number: None

PATIENT
  Age: 18 Year
  Sex: Female
  Weight: 74.8435 kg

DRUGS (1)
  1. YAZ [Suspect]
     Indication: CONTRACEPTION
     Dosage: ONE PILL QDQ PO
     Route: 048
     Dates: start: 20090909, end: 20091210

REACTIONS (9)
  - BREAST ENLARGEMENT [None]
  - DEPRESSION [None]
  - HYPERSOMNIA [None]
  - MENSTRUATION IRREGULAR [None]
  - MOOD SWINGS [None]
  - SINUSITIS [None]
  - VAGINAL HAEMORRHAGE [None]
  - VIRAL INFECTION [None]
  - WEIGHT INCREASED [None]
